FAERS Safety Report 6915023-8 (Version None)
Quarter: 2010Q3

REPORT INFORMATION
  Report Type: 
  Country: None (occurrence: None)
  Receive Date: 20100809
  Receipt Date: 20100729
  Transmission Date: 20110219
  Serious: Yes (Hospitalization)
  Sender: FDA-Public Use
  Company Number: NL-AMGEN-QUU429180

PATIENT
  Sex: Female

DRUGS (7)
  1. ENBREL [Suspect]
     Indication: RHEUMATOID ARTHRITIS
     Route: 058
     Dates: start: 20100715
  2. FEXOFENADINE [Concomitant]
     Indication: SEASONAL ALLERGY
  3. OMEPRAZOLE [Concomitant]
     Indication: PROPHYLAXIS
     Dates: start: 20100301
  4. FLUVOXAMINE MALEATE [Concomitant]
     Dates: start: 20050101
  5. BROTIZOLAM [Concomitant]
     Indication: SLEEP DISORDER
     Dates: start: 20050101
  6. IBUPROFEN [Concomitant]
     Indication: RHEUMATOID ARTHRITIS
     Dosage: 600 MG IF REQUIRED
     Dates: start: 20100301
  7. MOMETASONE FUROATE [Concomitant]
     Indication: SEASONAL ALLERGY
     Route: 045
     Dates: start: 20060101

REACTIONS (1)
  - HEADACHE [None]
